FAERS Safety Report 7768992-0 (Version None)
Quarter: 2011Q3

REPORT INFORMATION
  Report Type: 
  Country: None (occurrence: None)
  Receive Date: 20110922
  Receipt Date: 20101028
  Transmission Date: 20111222
  Serious: No
  Sender: FDA-Public Use
  Company Number: US-ASTRAZENECA-2010SE51591

PATIENT
  Age: 51 Year
  Sex: Female

DRUGS (2)
  1. SEROQUEL XR [Suspect]
     Route: 048
     Dates: start: 20100901
  2. SEROQUEL XR [Suspect]
     Route: 048
     Dates: end: 20100901

REACTIONS (1)
  - THERAPEUTIC PROCEDURE [None]
